FAERS Safety Report 11554305 (Version 1)
Quarter: 2015Q3

REPORT INFORMATION
  Report Type: Spontaneous
  Country: US (occurrence: US)
  Receive Date: 20150925
  Receipt Date: 20150925
  Transmission Date: 20151125
  Serious: No
  Sender: FDA-Public Use
  Company Number: US-WATSON-2014-24403

PATIENT
  Sex: Female

DRUGS (3)
  1. CALCIUM [Concomitant]
     Active Substance: CALCIUM
     Indication: PRODUCT USED FOR UNKNOWN INDICATION
     Dosage: UNK
     Route: 065
  2. ALENDRONATE SODIUM (WATSON LABORATORIES) [Suspect]
     Active Substance: ALENDRONATE SODIUM
     Indication: BONE DENSITY DECREASED
     Dosage: 1 DF, 1/WEEK
     Route: 048
     Dates: end: 20141014
  3. OMEPRAZOLE. [Concomitant]
     Active Substance: OMEPRAZOLE
     Indication: GASTROOESOPHAGEAL REFLUX DISEASE
     Dosage: 20 MG, QOD PRN
     Route: 048

REACTIONS (2)
  - Asthenia [Not Recovered/Not Resolved]
  - Paraesthesia oral [Not Recovered/Not Resolved]
